FAERS Safety Report 4472105-0 (Version None)
Quarter: 2004Q4

REPORT INFORMATION
  Report Type: 
  Country: None (occurrence: None)
  Receive Date: 20041008
  Receipt Date: 20040925
  Transmission Date: 20050328
  Serious: Yes (Disabling, Other)
  Sender: FDA-Public Use
  Company Number: 2004071916

PATIENT
  Sex: Male
  Weight: 104.3273 kg

DRUGS (6)
  1. NARDIL [Suspect]
     Indication: BIPOLAR DISORDER
     Dosage: 15 MG (15 MG, 1 IN 1 D), ORAL
     Route: 048
  2. NARDIL [Suspect]
     Indication: DEPRESSION
     Dosage: 15 MG (15 MG, 1 IN 1 D), ORAL
     Route: 048
  3. FLUOXETINE HYDROCHLORIDE [Suspect]
     Indication: DEPRESSION
     Dosage: ORAL
     Route: 048
     Dates: start: 20040916, end: 20040917
  4. LAMOTRIGINE [Suspect]
     Indication: DEPRESSION
     Dosage: 25 MG, ORAL
     Route: 048
     Dates: end: 20040901
  5. MODAFINIL [Suspect]
     Indication: DEPRESSION
     Dosage: 200 MG (1 IN 1 D)
     Dates: start: 20040921
  6. NIFEDIPINE [Concomitant]

REACTIONS (20)
  - ANOREXIA [None]
  - ARTERIAL STENOSIS LIMB [None]
  - ASTHENIA [None]
  - BLINDNESS UNILATERAL [None]
  - CEREBROVASCULAR ACCIDENT [None]
  - CONDITION AGGRAVATED [None]
  - DEPRESSION [None]
  - DISORIENTATION [None]
  - DISTURBANCE IN ATTENTION [None]
  - DIZZINESS [None]
  - DRUG INEFFECTIVE [None]
  - HYPOAESTHESIA [None]
  - HYPOAESTHESIA ORAL [None]
  - NASAL DISORDER [None]
  - NAUSEA [None]
  - PRURITUS [None]
  - RASH [None]
  - RETINAL DETACHMENT [None]
  - SOMNOLENCE [None]
  - SWELLING FACE [None]
